FAERS Safety Report 10033383 (Version 2)
Quarter: 2014Q2

REPORT INFORMATION
  Report Type: Spontaneous
  Country: US (occurrence: US)
  Receive Date: 20140325
  Receipt Date: 20140414
  Transmission Date: 20141212
  Serious: No
  Sender: FDA-Public Use
  Company Number: US-009507513-1403USA006829

PATIENT
  Sex: 0

DRUGS (1)
  1. INTRONA [Suspect]
     Dosage: 0.05 ML, 3 TIMES A WEEK
     Route: 023
     Dates: start: 201309

REACTIONS (4)
  - Incorrect dose administered [Unknown]
  - Incorrect route of drug administration [Unknown]
  - Expired product administered [Unknown]
  - No adverse event [Unknown]
